FAERS Safety Report 25222246 (Version 4)
Quarter: 2025Q2

REPORT INFORMATION
  Report Type: Report from Study
  Country: US (occurrence: US)
  Receive Date: 20250421
  Receipt Date: 20250522
  Transmission Date: 20250717
  Serious: Yes (Other)
  Sender: DR REDDYS
  Company Number: US-DRL-USA-USA/2025/04/005503

PATIENT
  Age: 18 Year

DRUGS (2)
  1. ZENATANE [Suspect]
     Active Substance: ISOTRETINOIN
     Indication: Acne
     Dosage: IN EVENING
     Route: 065
     Dates: start: 20240828, end: 20250214
  2. ZENATANE [Suspect]
     Active Substance: ISOTRETINOIN
     Dosage: IN MORNING
     Route: 065
     Dates: start: 20240828, end: 20250214

REACTIONS (9)
  - Exposure during pregnancy [Unknown]
  - Mood swings [Not Recovered/Not Resolved]
  - Substance use [Not Recovered/Not Resolved]
  - Depression [Unknown]
  - Emergency care [Unknown]
  - Fight in school [Unknown]
  - Treatment noncompliance [Unknown]
  - Panic attack [Not Recovered/Not Resolved]
  - Abortion induced [Not Recovered/Not Resolved]

NARRATIVE: CASE EVENT DATE: 20250201
